FAERS Safety Report 9250486 (Version 1)
Quarter: 2013Q1

REPORT INFORMATION
  Report Type: Spontaneous
  Country: US (occurrence: None)
  Receive Date: 20130305
  Receipt Date: 20130305
  Transmission Date: 20140127
  Serious: Yes (Hospitalization)
  Sender: FDA-Public Use
  Company Number: 163-21880-12042751

PATIENT
  Age: 82 Year
  Sex: Female

DRUGS (9)
  1. REVLIMID [Suspect]
     Indication: PLASMA CELL MYELOMA
     Dosage: 25MG, 21, PO
     Route: 048
     Dates: start: 20120329
  2. CARVEDILOL (CARBEDILOL) [Concomitant]
  3. CYPROHEPTADINE HCL (CYPROHEPTADINE HYDROCHLORIDE) [Concomitant]
  4. DIOVAN (VALSARTAN) [Concomitant]
  5. DONEPEZIL HCL (DONEPEZIL HYDROCHLORIDE) (UNKNOWN [Concomitant]
  6. FAMOTIDINE (FAMOTIDINE) (UNKNOWN) [Concomitant]
  7. FUROSEMIDE (FUROSEMIDE) (UNKNOWN) [Concomitant]
  8. HYDROCODONE / ACETAMINOPHEN  (REMEDEINE) [Concomitant]
  9. MAGNESIUM OXIDE (MAGNESIUM OXIDE) (UNKNOWN) [Concomitant]

REACTIONS (1)
  - Pain [None]
